FAERS Safety Report 18202321 (Version 1)
Quarter: 2020Q3

REPORT INFORMATION
  Report Type: Spontaneous
  Country: DE (occurrence: DE)
  Receive Date: 20200827
  Receipt Date: 20200827
  Transmission Date: 20201103
  Serious: Yes (Hospitalization)
  Sender: FDA-Public Use
  Company Number: DE-TEVA-2020-DE-1820170

PATIENT
  Age: 90 Year
  Sex: Male

DRUGS (9)
  1. CYANOCOBALAMIN (VITAMIN B12) [Concomitant]
     Dosage: 1 DOSAGE FORMS DAILY; 1000 UG, 1?0?0?0
     Route: 048
  2. RISPERIDON [Interacting]
     Active Substance: RISPERIDONE
     Dosage: 1 MILLIGRAM DAILY;  0?0?0?1
     Route: 048
  3. ATORVASTATIN [Concomitant]
     Active Substance: ATORVASTATIN
     Dosage: 40 MILLIGRAM DAILY; 0?0?1?0
     Route: 048
  4. FINASTERID [Suspect]
     Active Substance: FINASTERIDE
     Dosage: 5 MILLIGRAM DAILY; 1?0?0?0
     Route: 048
  5. TORASEMID [Interacting]
     Active Substance: TORSEMIDE
     Dosage: 10 MG, 3?2?0?0  (UNIT DOSE: 50 MG)
     Route: 048
  6. PIPAMPERON [Interacting]
     Active Substance: PIPAMPERONE HYDROCHLORIDE
     Dosage: 40 MILLIGRAM DAILY; 0?0?1?0
     Route: 048
  7. PANTOPRAZOL [Concomitant]
     Active Substance: PANTOPRAZOLE SODIUM
     Dosage: 40 MILLIGRAM DAILY; 1?0?0?0
     Route: 048
  8. CANDESARTAN. [Interacting]
     Active Substance: CANDESARTAN
     Dosage: 8 MILLIGRAM DAILY; 1?0?0?0
     Route: 048
  9. NALOXON/TILIDIN [Interacting]
     Active Substance: NALOXONE HYDROCHLORIDE\TILIDINE HYDROCHLORIDE
     Dosage: 2 DOSAGE FORMS DAILY; 4|50 MG, 1?0?1?0
     Route: 048

REACTIONS (6)
  - Fracture [Unknown]
  - Product monitoring error [Unknown]
  - Fall [Unknown]
  - Pain [Unknown]
  - Pain in extremity [Unknown]
  - Labelled drug-drug interaction medication error [Unknown]
